FAERS Safety Report 4538338-X (Version None)
Quarter: 2004Q4

REPORT INFORMATION
  Report Type: 
  Country: None (occurrence: None)
  Receive Date: 20041223
  Receipt Date: 20041223
  Transmission Date: 20050328
  Serious: Yes (Other)
  Sender: FDA-Public Use
  Company Number: None

PATIENT
  Age: 47 Year
  Sex: Male
  Weight: 79.3795 kg

DRUGS (1)
  1. ZICAM COLD REMEDY MATRIXX, INC [Suspect]
     Indication: UPPER RESPIRATORY TRACT INFECTION
     Dosage: 1 SPRAY EVERY 4 HRS NASAL
     Route: 045
     Dates: start: 20041101, end: 20041102

REACTIONS (1)
  - ANOSMIA [None]
